FAERS Safety Report 8790013 (Version 4)
Quarter: 2013Q2

REPORT INFORMATION
  Report Type: Report from Study
  Country: US (occurrence: US)
  Receive Date: 20120917
  Receipt Date: 20130507
  Transmission Date: 20140414
  Serious: Yes (Other)
  Sender: FDA-Public Use
  Company Number: US-VERTEX PHARMACEUTICAL INC.-2012-020550

PATIENT
  Age: 63 Year
  Sex: Female
  Weight: 84 kg

DRUGS (6)
  1. VX-950 (TELAPREVIR) [Suspect]
     Indication: HEPATITIS C
     Dosage: 750 MG, TID
     Route: 048
     Dates: start: 20120812, end: 20121104
  2. PEGASYS [Suspect]
     Indication: HEPATITIS C
     Dosage: 180 ?G, QW
     Route: 058
     Dates: start: 20120812, end: 201301
  3. RIBASPHERE [Suspect]
     Indication: HEPATITIS C
     Dosage: 600 MG, BID
     Route: 048
     Dates: start: 20120812, end: 201301
  4. SYNTHROID [Concomitant]
  5. LISINOPRIL [Concomitant]
  6. ASPIRIN [Concomitant]

REACTIONS (12)
  - White blood cell count decreased [Unknown]
  - Kidney infection [Not Recovered/Not Resolved]
  - Back pain [Not Recovered/Not Resolved]
  - Musculoskeletal discomfort [Not Recovered/Not Resolved]
  - Fatigue [Unknown]
  - Rash papular [Recovered/Resolved]
  - Platelet count decreased [Unknown]
  - Vomiting [Unknown]
  - Nausea [Recovered/Resolved]
  - Proctalgia [Recovered/Resolved]
  - Anorectal discomfort [Recovered/Resolved]
  - Drug ineffective [Not Recovered/Not Resolved]
